FAERS Safety Report 13738845 (Version 1)
Quarter: 2017Q3

REPORT INFORMATION
  Report Type: Spontaneous
  Country: FR (occurrence: FR)
  Receive Date: 20170710
  Receipt Date: 20170710
  Transmission Date: 20171127
  Serious: Yes (Hospitalization, Congenital Anomaly)
  Sender: FDA-Public Use
  Company Number: FR-ABBVIE-17P-056-2033220-00

PATIENT
  Age: 2 Month
  Sex: Male

DRUGS (1)
  1. VALPROATE SALT NOT SPECIFIED [Suspect]
     Active Substance: VALPROATE SODIUM
     Indication: MATERNAL EXPOSURE TIMING UNSPECIFIED
     Route: 064

REACTIONS (10)
  - Pulse absent [Recovered/Resolved]
  - Blood pressure abnormal [Recovered/Resolved]
  - Left ventricular hypertrophy [Recovered/Resolved]
  - Electrocardiogram abnormal [Recovered/Resolved]
  - Angiogram abnormal [Recovered/Resolved]
  - Foetal exposure during pregnancy [Unknown]
  - Tachypnoea [Recovered/Resolved]
  - Cardiac murmur [Recovered/Resolved]
  - Interruption of aortic arch [Recovered/Resolved]
  - Femoral pulse abnormal [Recovered/Resolved]
